FAERS Safety Report 10179801 (Version 1)
Quarter: 2014Q2

REPORT INFORMATION
  Report Type: Spontaneous
  Country: US (occurrence: None)
  Receive Date: 20140515
  Receipt Date: 20140515
  Transmission Date: 20141212
  Serious: Yes (Hospitalization)
  Sender: FDA-Public Use
  Company Number: UTC-048420

PATIENT
  Age: 64 Year
  Sex: Female
  Weight: 43.99 kg

DRUGS (4)
  1. REMODULIN [Suspect]
     Indication: ATRIAL SEPTAL DEFECT
     Dosage: (0.02 UG/KG, 1 IN 1 MIN)?
     Route: 041
     Dates: start: 20140409
  2. TRACLEER (BOSENTAN) [Concomitant]
  3. SILDENALFIL [Concomitant]
  4. REVATIO (SILDENAFIL CITRATE) [Concomitant]

REACTIONS (3)
  - Dyspnoea [None]
  - Oedema peripheral [None]
  - Oedema peripheral [None]
